FAERS Safety Report 7014827-3 (Version None)
Quarter: 2010Q3

REPORT INFORMATION
  Report Type: 
  Country: None (occurrence: None)
  Receive Date: 20100927
  Receipt Date: 20091102
  Transmission Date: 20110219
  Serious: No
  Sender: FDA-Public Use
  Company Number: US-MYLANLABS-2009S1019108

PATIENT
  Age: 53 Year
  Sex: Female

DRUGS (2)
  1. FUROSEMIDE TABLETS, USP [Suspect]
     Indication: OEDEMA PERIPHERAL
     Route: 048
     Dates: start: 20090911, end: 20091001
  2. ASKINA DERM FILM DRESSING [Suspect]

REACTIONS (1)
  - RASH PRURITIC [None]
